FAERS Safety Report 14693252 (Version 2)
Quarter: 2018Q2

REPORT INFORMATION
  Report Type: Report from Study
  Country: AU (occurrence: AU)
  Receive Date: 20180329
  Receipt Date: 20180412
  Transmission Date: 20180711
  Serious: Yes (Other)
  Sender: FDA-Public Use
  Company Number: AU-REGENERON PHARMACEUTICALS, INC.-2018-19607

PATIENT

DRUGS (7)
  1. EYLEA [Suspect]
     Active Substance: AFLIBERCEPT
     Indication: NEOVASCULAR AGE-RELATED MACULAR DEGENERATION
     Dosage: UNK, LEFT EYE (3 INJECTIONS)
     Route: 031
     Dates: start: 20170907
  2. EYLEA [Suspect]
     Active Substance: AFLIBERCEPT
     Dosage: UNK, ONCE, LEFT EYE (FORTH INJECTION)
     Dates: start: 201712, end: 201712
  3. EYLEA [Suspect]
     Active Substance: AFLIBERCEPT
     Dosage: UNK UNK, ONCE , LEFT EYE
     Dates: start: 201801, end: 201801
  4. EYLEA [Suspect]
     Active Substance: AFLIBERCEPT
     Dosage: UNK UNK, ONCE , LEFT EYE
     Dates: start: 201802, end: 201802
  5. BETADINE [Suspect]
     Active Substance: POVIDONE-IODINE
     Indication: PRODUCT USED FOR UNKNOWN INDICATION
     Dosage: UNK
     Dates: start: 20170907, end: 2017
  6. CHLORHEXIDINE [Concomitant]
     Active Substance: CHLORHEXIDINE
     Indication: PRODUCT USED FOR UNKNOWN INDICATION
  7. IODINE. [Suspect]
     Active Substance: IODINE
     Indication: PRODUCT USED FOR UNKNOWN INDICATION
     Dosage: UNK
     Dates: start: 201802

REACTIONS (13)
  - Sinus disorder [Unknown]
  - Dark circles under eyes [Unknown]
  - Swelling face [Unknown]
  - Photophobia [Not Recovered/Not Resolved]
  - Eye pain [Unknown]
  - Application site pain [Recovered/Resolved]
  - Head discomfort [Recovering/Resolving]
  - Eye irritation [Unknown]
  - Ulcerative keratitis [Unknown]
  - Fall [Recovering/Resolving]
  - Intentional dose omission [Unknown]
  - Corneal abrasion [Unknown]
  - Head discomfort [Unknown]

NARRATIVE: CASE EVENT DATE: 201709
